FAERS Safety Report 10464536 (Version 1)
Quarter: 2014Q3

REPORT INFORMATION
  Report Type: Spontaneous
  Country: BR (occurrence: BR)
  Receive Date: 20140919
  Receipt Date: 20140919
  Transmission Date: 20150326
  Serious: Yes (Hospitalization, Other)
  Sender: FDA-Public Use
  Company Number: BR-JNJFOC-20140913441

PATIENT
  Age: 53 Year
  Sex: Female
  Weight: 71.3 kg

DRUGS (10)
  1. HALDOL [Suspect]
     Active Substance: HALOPERIDOL
     Indication: OBSESSIVE THOUGHTS
     Route: 065
     Dates: start: 200912
  2. REMICADE [Concomitant]
     Active Substance: INFLIXIMAB
     Indication: TENDONITIS
     Route: 065
     Dates: start: 20130828
  3. REMICADE [Concomitant]
     Active Substance: INFLIXIMAB
     Indication: RHEUMATOID ARTHRITIS
     Route: 065
     Dates: start: 20130828
  4. ACETYLSALICYLIC ACID [Concomitant]
     Active Substance: ASPIRIN
     Indication: ANTICOAGULANT THERAPY
     Dosage: INDICATED TO THIN THE BLOOD
     Route: 065
  5. REMICADE [Concomitant]
     Active Substance: INFLIXIMAB
     Indication: RHEUMATIC DISORDER
     Route: 065
     Dates: start: 20130828
  6. ATORVASTATIN [Concomitant]
     Active Substance: ATORVASTATIN
     Dosage: INDICATED TO CLEAR THE FAT OF BLOOD
     Route: 065
  7. ARADOIS H [Concomitant]
     Active Substance: HYDROCHLOROTHIAZIDE\LOSARTAN POTASSIUM
     Indication: BLOOD PRESSURE
     Route: 065
  8. FENOFIBRATE. [Concomitant]
     Active Substance: FENOFIBRATE
     Dosage: INDICATED TO CLEAR FAT OF BLOOD
     Route: 065
  9. ABLOK PLUS [Concomitant]
     Active Substance: ATENOLOL\CHLORTHALIDONE
     Indication: BLOOD PRESSURE
     Route: 065
  10. DIAZEPAM. [Concomitant]
     Active Substance: DIAZEPAM
     Indication: SEDATIVE THERAPY
     Route: 065

REACTIONS (3)
  - Paralysis [Recovered/Resolved]
  - Hospitalisation [Recovered/Resolved]
  - Off label use [Unknown]

NARRATIVE: CASE EVENT DATE: 200912
